FAERS Safety Report 8857491 (Version 4)
Quarter: 2013Q1

REPORT INFORMATION
  Report Type: Spontaneous
  Country: FR (occurrence: FR)
  Receive Date: 20121024
  Receipt Date: 20130307
  Transmission Date: 20140127
  Serious: Yes (Hospitalization)
  Sender: FDA-Public Use
  Company Number: FR-CELGENEUS-056-50794-12101852

PATIENT
  Age: 62 Year
  Sex: Female

DRUGS (3)
  1. VIDAZA [Suspect]
     Indication: REFRACTORY ANAEMIA WITH AN EXCESS OF BLASTS
     Dosage: 75 MILLIGRAM/SQ. METER
     Route: 058
     Dates: start: 20121009
  2. VIDAZA [Suspect]
     Dosage: 75 MILLIGRAM/SQ. METER
     Route: 058
  3. PARACETAMOL [Concomitant]
     Indication: PAIN
     Route: 065

REACTIONS (2)
  - Epilepsy [Recovered/Resolved]
  - Rash macular [Recovered/Resolved]
